FAERS Safety Report 18330460 (Version 1)
Quarter: 2020Q3

REPORT INFORMATION
  Report Type: Spontaneous
  Country: DE (occurrence: DE)
  Receive Date: 20200930
  Receipt Date: 20200930
  Transmission Date: 20201103
  Serious: Yes (Hospitalization)
  Sender: FDA-Public Use
  Company Number: DE-MYLANLABS-2020M1081623

PATIENT
  Age: 83 Year
  Sex: Male
  Weight: 77 kg

DRUGS (7)
  1. LITHIUM. [Concomitant]
     Active Substance: LITHIUM
     Dosage: 450 MILLIGRAM (450 MG, 0.5?0?0.5?0)
  2. CITALOPRAM [Suspect]
     Active Substance: CITALOPRAM HYDROBROMIDE
     Indication: PRODUCT USED FOR UNKNOWN INDICATION
     Dosage: 30 MILLIGRAM, QD(30 MG, 1?0?0?0)
  3. SALBUTAMOL [Concomitant]
     Active Substance: ALBUTEROL
     Dosage: UNK UNK, PRN(NK MG, BEI BEDARF )
  4. ACETYLSALICYLIC ACID [Suspect]
     Active Substance: ASPIRIN
     Indication: PRODUCT USED FOR UNKNOWN INDICATION
     Dosage: 100 MILLIGRAM, Q2D(100 MG/2TAGE, 1?0?0?0)
  5. ROSUVASTATIN. [Concomitant]
     Active Substance: ROSUVASTATIN
     Dosage: 10 MILLIGRAM, QD(10 MG, 0?0?1?0)
  6. COLECALCIFEROL [Concomitant]
     Active Substance: CHOLECALCIFEROL
     Dosage: 20000 INTERNATIONAL UNIT, QW(20.000 IE / WOCHE, 1X)
  7. LORAZEPAM. [Concomitant]
     Active Substance: LORAZEPAM
     Dosage: 0.5 MG, 0?0?0.75?0

REACTIONS (6)
  - Internal haemorrhage [Unknown]
  - General physical health deterioration [Unknown]
  - Haematochezia [Unknown]
  - Haematemesis [Unknown]
  - Anaemia [Unknown]
  - Abdominal pain [Unknown]
